FAERS Safety Report 10438512 (Version 1)
Quarter: 2014Q3

REPORT INFORMATION
  Report Type: Spontaneous
  Country: CH (occurrence: CH)
  Receive Date: 20140908
  Receipt Date: 20140908
  Transmission Date: 20150326
  Serious: Yes (Other)
  Sender: FDA-Public Use
  Company Number: CH-GLAXOSMITHKLINE-B1030405A

PATIENT
  Sex: Female

DRUGS (1)
  1. VALTREX [Suspect]
     Active Substance: VALACYCLOVIR HYDROCHLORIDE
     Indication: HERPES SIMPLEX
     Dosage: 1000MG PER DAY
     Route: 048
     Dates: start: 20140719, end: 20140720

REACTIONS (6)
  - Vision blurred [Unknown]
  - Headache [Unknown]
  - Hypoaesthesia [Unknown]
  - Nausea [Unknown]
  - Photosensitivity reaction [Unknown]
  - Visual impairment [Unknown]

NARRATIVE: CASE EVENT DATE: 20140722
